FAERS Safety Report 9921817 (Version 1)
Quarter: 2014Q1

REPORT INFORMATION
  Report Type: Spontaneous
  Country: US (occurrence: US)
  Receive Date: 20140225
  Receipt Date: 20140225
  Transmission Date: 20141002
  Serious: No
  Sender: FDA-Public Use
  Company Number: US-BAYER-2014-029066

PATIENT
  Age: 39 Year
  Sex: Male
  Weight: 106.58 kg

DRUGS (1)
  1. ALEVE TABLET [Suspect]
     Indication: MYALGIA
     Dosage: 1 DF, QD
     Route: 048
     Dates: start: 2013

REACTIONS (2)
  - Drug screen positive [Not Recovered/Not Resolved]
  - Incorrect drug administration duration [None]
